FAERS Safety Report 24847940 (Version 3)
Quarter: 2025Q1

REPORT INFORMATION
  Report Type: Spontaneous
  Country: VE (occurrence: VE)
  Receive Date: 20250116
  Receipt Date: 20250227
  Transmission Date: 20250408
  Serious: Yes (Death, Hospitalization, Other)
  Sender: NOVARTIS
  Company Number: VE-002147023-NVSC2025VE006238

PATIENT
  Sex: Male

DRUGS (1)
  1. GLIVEC [Suspect]
     Active Substance: IMATINIB MESYLATE
     Indication: Chronic myeloid leukaemia
     Route: 065

REACTIONS (13)
  - Death [Fatal]
  - Chronic myeloid leukaemia transformation [Unknown]
  - Renal disorder [Unknown]
  - Pain in extremity [Unknown]
  - Splenomegaly [Unknown]
  - Memory impairment [Unknown]
  - Aphasia [Unknown]
  - Restlessness [Unknown]
  - Ill-defined disorder [Unknown]
  - Pancreatic enlargement [Unknown]
  - Hepatomegaly [Unknown]
  - Vomiting [Unknown]
  - Malaise [Unknown]
